FAERS Safety Report 5852018-X (Version None)
Quarter: 2008Q3

REPORT INFORMATION
  Report Type: 
  Country: None (occurrence: None)
  Receive Date: 20080820
  Receipt Date: 20080808
  Transmission Date: 20090109
  Serious: Yes (Other)
  Sender: FDA-Public Use
  Company Number: GB-PFIZER INC-2008067293

PATIENT
  Age: 39 Year
  Sex: Female
  Weight: 57 kg

DRUGS (4)
  1. LYRICA [Suspect]
     Indication: PAIN
     Route: 048
  2. ACETAMINOPHEN [Concomitant]
     Indication: INTERVERTEBRAL DISC PROTRUSION
     Route: 048
  3. TRAMADOL HCL [Concomitant]
     Indication: NEURALGIA
     Route: 048
  4. TRAMADOL HCL [Concomitant]
     Indication: MUSCULOSKELETAL PAIN

REACTIONS (6)
  - DIZZINESS [None]
  - EYE PAIN [None]
  - FALL [None]
  - LACRIMATION INCREASED [None]
  - SOMNOLENCE [None]
  - VISUAL IMPAIRMENT [None]
